FAERS Safety Report 10559205 (Version 2)
Quarter: 2021Q3

REPORT INFORMATION
  Report Type: Spontaneous
  Country: DE (occurrence: DE)
  Receive Date: 20141103
  Receipt Date: 20210816
  Transmission Date: 20211014
  Serious: Yes (Other)
  Sender: FDA-Public Use
  Company Number: DE-AUROBINDO-AUR-APL-2014-11302

PATIENT
  Age: 1 Day
  Sex: Male
  Weight: 3.5 kg

DRUGS (3)
  1. CENTRUM MATERNA [Concomitant]
     Active Substance: MINERALS\VITAMINS
     Indication: PROPHYLAXIS OF NEURAL TUBE DEFECT
     Dosage: 0.4 MILLIGRAM, ONCE A DAY
     Route: 064
  2. ANAFRANIL [Suspect]
     Active Substance: CLOMIPRAMINE HYDROCHLORIDE
     Indication: SCHIZOPHRENIA
     Dosage: 75 MG, ONCE A DAY
     Route: 064
     Dates: start: 20130128, end: 20131026
  3. OLANZAPINE 7.5MG [Suspect]
     Active Substance: OLANZAPINE
     Indication: SCHIZOPHRENIA
     Dosage: 7.5 MG, ONCE A DAY
     Route: 064
     Dates: start: 20130128, end: 20131026

REACTIONS (10)
  - Foot deformity [Unknown]
  - Drug withdrawal syndrome neonatal [Recovered/Resolved]
  - Respiratory distress [Recovered/Resolved]
  - Feeding disorder [Recovered/Resolved]
  - Atrial septal defect [Unknown]
  - Hyperbilirubinaemia neonatal [Recovered/Resolved]
  - Diabetic foetopathy [Unknown]
  - Muscular weakness [Recovered/Resolved]
  - Foetal exposure during pregnancy [Unknown]
  - Cardiac septal hypertrophy [Unknown]

NARRATIVE: CASE EVENT DATE: 2013
